FAERS Safety Report 19710255 (Version 3)
Quarter: 2022Q1

REPORT INFORMATION
  Report Type: Report from Study
  Country: MX (occurrence: MX)
  Receive Date: 20210817
  Receipt Date: 20220128
  Transmission Date: 20220423
  Serious: Yes (Hospitalization, Other)
  Sender: FDA-Public Use
  Company Number: MX-NOVARTISPH-NVSC2020MX283000

PATIENT
  Age: 63 Year
  Sex: Female
  Weight: 50 kg

DRUGS (1)
  1. TASIGNA [Suspect]
     Active Substance: NILOTINIB
     Indication: Chronic myeloid leukaemia
     Dosage: 1 DF (400 MG,), Q12H
     Route: 048
     Dates: start: 202005

REACTIONS (33)
  - Yellow skin [Unknown]
  - Inflammation [Unknown]
  - Neoplasm [Unknown]
  - Hodgkin^s disease [Unknown]
  - Gastric neoplasm [Unknown]
  - Hepatic neoplasm [Unknown]
  - Cholelithiasis [Not Recovered/Not Resolved]
  - Gastritis [Not Recovered/Not Resolved]
  - Colitis [Not Recovered/Not Resolved]
  - Blister [Unknown]
  - Hepatic pain [Not Recovered/Not Resolved]
  - Vision blurred [Not Recovered/Not Resolved]
  - Alopecia [Not Recovered/Not Resolved]
  - Headache [Not Recovered/Not Resolved]
  - Decreased appetite [Unknown]
  - Constipation [Unknown]
  - Dry mouth [Unknown]
  - Fatigue [Unknown]
  - Insomnia [Unknown]
  - Nausea [Unknown]
  - Vomiting [Unknown]
  - Dyspnoea [Unknown]
  - Diarrhoea [Recovering/Resolving]
  - Weight decreased [Recovering/Resolving]
  - Blood calcium decreased [Unknown]
  - Agitation [Unknown]
  - Feeling abnormal [Unknown]
  - Eating disorder [Unknown]
  - Parotid gland enlargement [Unknown]
  - Dry skin [Recovering/Resolving]
  - Renal disorder [Recovering/Resolving]
  - Hunger [Unknown]
  - Amnesia [Unknown]

NARRATIVE: CASE EVENT DATE: 20200501
